FAERS Safety Report 10675151 (Version 5)
Quarter: 2015Q2

REPORT INFORMATION
  Report Type: Spontaneous
  Country: US (occurrence: US)
  Receive Date: 20141224
  Receipt Date: 20150428
  Transmission Date: 20150821
  Serious: Yes (Hospitalization, Other)
  Sender: FDA-Public Use
  Company Number: US-GLAXOSMITHKLINE-US2014GSK041738

PATIENT
  Sex: Female

DRUGS (3)
  1. PROMACTA [Suspect]
     Active Substance: ELTROMBOPAG OLAMINE
     Indication: THROMBOCYTOPENIA
     Dosage: 50 MG, QD
     Route: 048
     Dates: start: 20150109
  2. PROMACTA [Suspect]
     Active Substance: ELTROMBOPAG OLAMINE
     Indication: HENOCH-SCHONLEIN PURPURA
     Dosage: 50 MG, QD
     Dates: start: 20150110
  3. PROMACTA [Suspect]
     Active Substance: ELTROMBOPAG OLAMINE
     Dosage: 100 MG, QD
     Dates: start: 20150110

REACTIONS (6)
  - Hospitalisation [Unknown]
  - Malaise [Unknown]
  - Drug dose omission [Unknown]
  - Urinary bladder haemorrhage [Unknown]
  - Nausea [Unknown]
  - Adverse drug reaction [Unknown]
